FAERS Safety Report 5740103-2 (Version None)
Quarter: 2008Q2

REPORT INFORMATION
  Report Type: 
  Country: None (occurrence: None)
  Receive Date: 20080513
  Receipt Date: 20080428
  Transmission Date: 20081010
  Serious: Yes (Other)
  Sender: FDA-Public Use
  Company Number: 2008S1007147

PATIENT
  Age: 58 Year
  Sex: Male

DRUGS (2)
  1. METHOTREXATE [Suspect]
     Dosage: 0.15 ML; ONCE; SUBCUTANEOUS
     Route: 058
     Dates: start: 20080416, end: 20080416
  2. DETICENE [Concomitant]

REACTIONS (1)
  - WRONG DRUG ADMINISTERED [None]
